FAERS Safety Report 22227656 (Version 2)
Quarter: 2023Q2

REPORT INFORMATION
  Report Type: Report from Study
  Country: RU (occurrence: RU)
  Receive Date: 20230419
  Receipt Date: 20230526
  Transmission Date: 20230722
  Serious: Yes (Other)
  Sender: FDA-Public Use
  Company Number: RU-002147023-NVSC2023RU086848

PATIENT
  Age: 72 Year
  Sex: Female

DRUGS (4)
  1. TAFINLAR [Suspect]
     Active Substance: DABRAFENIB MESYLATE
     Indication: Lung adenocarcinoma
     Dosage: 2 DOSAGE FORM, BID (300 MG PER DAY)
     Route: 048
     Dates: start: 202207, end: 20221221
  2. TAFINLAR [Suspect]
     Active Substance: DABRAFENIB MESYLATE
     Dosage: UNK
     Route: 065
     Dates: start: 202303
  3. MEKINIST [Suspect]
     Active Substance: TRAMETINIB DIMETHYL SULFOXIDE
     Indication: Lung adenocarcinoma
     Dosage: 2 MG, QD (1 TABLET PER DAY)
     Route: 048
     Dates: start: 202207, end: 20221221
  4. MEKINIST [Suspect]
     Active Substance: TRAMETINIB DIMETHYL SULFOXIDE
     Dosage: UNK
     Route: 065
     Dates: start: 202303

REACTIONS (10)
  - Humerus fracture [Recovering/Resolving]
  - Ischaemic cerebral infarction [Recovering/Resolving]
  - Metastases to central nervous system [Unknown]
  - Loss of consciousness [Unknown]
  - Carotid artery thrombosis [Unknown]
  - Abdominal distension [Unknown]
  - Body temperature increased [Not Recovered/Not Resolved]
  - Asthenia [Not Recovered/Not Resolved]
  - Decreased appetite [Not Recovered/Not Resolved]
  - Constipation [Unknown]

NARRATIVE: CASE EVENT DATE: 20221201
